FAERS Safety Report 10362288 (Version 2)
Quarter: 2014Q3

REPORT INFORMATION
  Report Type: Spontaneous
  Country: CA (occurrence: None)
  Receive Date: 20140723
  Receipt Date: 20140805
  Transmission Date: 20150326
  Serious: Yes (Other)
  Sender: FDA-Public Use
  Company Number: OTH-CLT-2014001

PATIENT
  Sex: Male

DRUGS (1)
  1. CARBAGLU [Suspect]
     Active Substance: CARGLUMIC ACID
     Indication: ACIDOSIS
     Dosage: 200 MG/KG EVERY DAY, ORAL
     Route: 048

REACTIONS (2)
  - Drug ineffective [None]
  - Respiratory tract infection [None]
